FAERS Safety Report 7698813-6 (Version None)
Quarter: 2011Q3

REPORT INFORMATION
  Report Type: 
  Country: None (occurrence: None)
  Receive Date: 20110819
  Receipt Date: 20110815
  Transmission Date: 20111222
  Serious: Yes (Hospitalization)
  Sender: FDA-Public Use
  Company Number: US-B.I. PHARMACEUTICALS,INC./RIDGEFIELD-2011-BP-19987BP

PATIENT
  Age: 79 Year

DRUGS (3)
  1. ASPIRIN [Suspect]
  2. PRADAXA [Suspect]
  3. PLAVIX [Suspect]

REACTIONS (1)
  - HAEMORRHAGE [None]
